FAERS Safety Report 18240377 (Version 1)
Quarter: 2020Q3

REPORT INFORMATION
  Report Type: Spontaneous
  Country: BH (occurrence: BH)
  Receive Date: 20200908
  Receipt Date: 20200908
  Transmission Date: 20201103
  Serious: Yes (Other)
  Sender: FDA-Public Use
  Company Number: BH-LUPIN PHARMACEUTICALS INC.-2020-05613

PATIENT
  Age: 22 Year
  Sex: Male

DRUGS (12)
  1. GENTAMYCIN [GENTAMICIN] [Suspect]
     Active Substance: GENTAMICIN
     Indication: KLEBSIELLA INFECTION
  2. GENTAMYCIN [GENTAMICIN] [Suspect]
     Active Substance: GENTAMICIN
     Indication: STENOTROPHOMONAS INFECTION
  3. BROLENE [DIBROMPROPAMIDINE ISETIONATE] [Suspect]
     Active Substance: DIBROMPROPAMIDINE ISETHIONATE
     Indication: STENOTROPHOMONAS INFECTION
  4. GENTAMYCIN [GENTAMICIN] [Suspect]
     Active Substance: GENTAMICIN
     Indication: ACANTHAMOEBA KERATITIS
     Dosage: UNK
     Route: 065
  5. BROLENE [DIBROMPROPAMIDINE ISETIONATE] [Suspect]
     Active Substance: DIBROMPROPAMIDINE ISETHIONATE
     Indication: ACANTHAMOEBA KERATITIS
     Dosage: UNK
     Route: 065
  6. BROLENE [DIBROMPROPAMIDINE ISETIONATE] [Suspect]
     Active Substance: DIBROMPROPAMIDINE ISETHIONATE
     Indication: KLEBSIELLA INFECTION
  7. MOXIFLOXACIN HYDROCHLORIDE. [Suspect]
     Active Substance: MOXIFLOXACIN HYDROCHLORIDE
     Indication: ACANTHAMOEBA KERATITIS
     Dosage: UNK
     Route: 065
  8. MAXITROL [Suspect]
     Active Substance: DEXAMETHASONE\NEOMYCIN SULFATE\POLYMYXIN B SULFATE
     Indication: KLEBSIELLA INFECTION
  9. MOXIFLOXACIN HYDROCHLORIDE. [Suspect]
     Active Substance: MOXIFLOXACIN HYDROCHLORIDE
     Indication: KLEBSIELLA INFECTION
  10. MOXIFLOXACIN HYDROCHLORIDE. [Suspect]
     Active Substance: MOXIFLOXACIN HYDROCHLORIDE
     Indication: STENOTROPHOMONAS INFECTION
  11. MAXITROL [Suspect]
     Active Substance: DEXAMETHASONE\NEOMYCIN SULFATE\POLYMYXIN B SULFATE
     Indication: ACANTHAMOEBA KERATITIS
     Dosage: UNK
     Route: 065
  12. MAXITROL [Suspect]
     Active Substance: DEXAMETHASONE\NEOMYCIN SULFATE\POLYMYXIN B SULFATE
     Indication: STENOTROPHOMONAS INFECTION

REACTIONS (2)
  - Drug ineffective [Unknown]
  - Condition aggravated [Unknown]
